FAERS Safety Report 7739885-X (Version None)
Quarter: 2011Q3

REPORT INFORMATION
  Report Type: 
  Country: None (occurrence: None)
  Receive Date: 20110909
  Receipt Date: 20110831
  Transmission Date: 20111222
  Serious: Yes (Other)
  Sender: FDA-Public Use
  Company Number: PHHY2011BE78465

PATIENT

DRUGS (1)
  1. ONBREZ [Suspect]
     Dosage: UNK UKN, UNK

REACTIONS (1)
  - ASTHMATIC CRISIS [None]
